FAERS Safety Report 4559244-0 (Version None)
Quarter: 2005Q1

REPORT INFORMATION
  Report Type: 
  Country: None (occurrence: None)
  Receive Date: 20050121
  Receipt Date: 20050121
  Transmission Date: 20050727
  Serious: Yes (Hospitalization)
  Sender: FDA-Public Use
  Company Number: None

PATIENT
  Age: 83 Year
  Sex: Female
  Weight: 60 kg

DRUGS (2)
  1. AGRYLIN [Suspect]
     Indication: POLYCYTHAEMIA
     Dosage: ORAL
     Route: 048
     Dates: start: 20031211, end: 20041211
  2. AGGRENOX [Suspect]
     Dosage: 1 TAB   BID   ORAL
     Route: 048
     Dates: start: 20031211, end: 20041211

REACTIONS (3)
  - ASTHENIA [None]
  - FAILURE TO THRIVE [None]
  - NEUTROPENIA [None]
